FAERS Safety Report 18494133 (Version 2)
Quarter: 2021Q2

REPORT INFORMATION
  Report Type: Report from Study
  Country: US (occurrence: US)
  Receive Date: 20201112
  Receipt Date: 20210527
  Transmission Date: 20210717
  Serious: Yes (Hospitalization, Other)
  Sender: FDA-Public Use
  Company Number: NVSC2020US293099

PATIENT
  Sex: Female

DRUGS (2)
  1. MEKINIST [Suspect]
     Active Substance: TRAMETINIB DIMETHYL SULFOXIDE
     Indication: MALIGNANT MELANOMA
     Dosage: 3 DF (1.5 MG), QD (3 TABLETS BY MOUTH ONCE DAILY)
     Route: 048
  2. BD [Concomitant]
     Indication: HYPERSENSITIVITY
     Dosage: 28 G, QD
     Route: 065

REACTIONS (3)
  - Pruritus [Unknown]
  - Cellulitis [Unknown]
  - Lymphoedema [Unknown]
